FAERS Safety Report 20477419 (Version 1)
Quarter: 2022Q1

REPORT INFORMATION
  Report Type: Report from Study
  Country: UY (occurrence: UY)
  Receive Date: 20220215
  Receipt Date: 20220215
  Transmission Date: 20220424
  Serious: Yes (Other)
  Sender: FDA-Public Use
  Company Number: UY-ABBVIE-22K-168-4279328-00

PATIENT
  Age: 37 Year
  Sex: Female

DRUGS (1)
  1. RINVOQ [Suspect]
     Active Substance: UPADACITINIB
     Indication: Rheumatoid arthritis
     Route: 048
     Dates: start: 20210204

REACTIONS (6)
  - Eye colour change [Recovering/Resolving]
  - Urine abnormality [Recovered/Resolved]
  - Abdominal pain lower [Recovering/Resolving]
  - Gastrointestinal inflammation [Unknown]
  - Liver function test abnormal [Unknown]
  - Hepatitis [Unknown]

NARRATIVE: CASE EVENT DATE: 20211201
